FAERS Safety Report 10459512 (Version 1)
Quarter: 2014Q3

REPORT INFORMATION
  Report Type: Report from Study
  Country: US (occurrence: US)
  Receive Date: 20140917
  Receipt Date: 20140917
  Transmission Date: 20150326
  Serious: Yes (Hospitalization, Other)
  Sender: FDA-Public Use
  Company Number: US-ABBVIE-14P-163-1283688-00

PATIENT
  Sex: Female
  Weight: 61.29 kg

DRUGS (9)
  1. LUPRON DEPOT [Suspect]
     Active Substance: LEUPROLIDE ACETATE
     Dosage: 2 INJECTIONS
     Route: 030
     Dates: start: 201310, end: 201401
  2. LUPRON DEPOT [Suspect]
     Active Substance: LEUPROLIDE ACETATE
     Indication: ENDOMETRIOSIS
     Route: 030
     Dates: start: 2004, end: 2004
  3. ALEVE [Concomitant]
     Active Substance: NAPROXEN SODIUM
     Indication: ABDOMINAL PAIN
  4. LUPRON DEPOT [Suspect]
     Active Substance: LEUPROLIDE ACETATE
     Indication: ENDOMETRIOSIS
     Dosage: 2 INJECTIONS
     Dates: start: 2004, end: 2004
  5. LUPRON DEPOT [Suspect]
     Active Substance: LEUPROLIDE ACETATE
     Dosage: 2 INJECTIONS
     Route: 030
     Dates: start: 200712, end: 200802
  6. LUPRON DEPOT [Suspect]
     Active Substance: LEUPROLIDE ACETATE
     Dosage: 2 INJECTIONS
     Route: 030
     Dates: end: 2010
  7. LUPRON DEPOT [Suspect]
     Active Substance: LEUPROLIDE ACETATE
     Route: 030
     Dates: start: 2012, end: 2012
  8. PROGESTERONE. [Suspect]
     Active Substance: PROGESTERONE
     Indication: CONTRACEPTION
     Route: 048
  9. NORETHINDRONE. [Suspect]
     Active Substance: NORETHINDRONE
     Indication: ENDOMETRIOSIS
     Route: 048
     Dates: start: 2010, end: 2011

REACTIONS (9)
  - Menstrual disorder [Not Recovered/Not Resolved]
  - Uterine adhesions [Not Recovered/Not Resolved]
  - Urinary tract infection [Recovered/Resolved]
  - Therapeutic response changed [Not Recovered/Not Resolved]
  - Weight increased [Recovered/Resolved]
  - Abdominal pain [Not Recovered/Not Resolved]
  - Abdominal pain lower [Recovered/Resolved]
  - Weight decreased [Not Recovered/Not Resolved]
  - Loss of consciousness [Not Recovered/Not Resolved]

NARRATIVE: CASE EVENT DATE: 2004
